FAERS Safety Report 10025403 (Version 1)
Quarter: 2014Q1

REPORT INFORMATION
  Report Type: Spontaneous
  Country: US (occurrence: US)
  Receive Date: 20140320
  Receipt Date: 20140320
  Transmission Date: 20141002
  Serious: No
  Sender: FDA-Public Use
  Company Number: US-PFIZER INC-2014072456

PATIENT
  Sex: Female

DRUGS (47)
  1. ZOLOFT [Suspect]
     Dosage: 50 MG, UNK
  2. PROTONIX [Suspect]
     Dosage: 40 MG, UNK
  3. METRONIDAZOLE [Suspect]
     Dosage: 750 MG (250MG+ 500MG), UNK
  4. CEFUROXIME AXETIL [Suspect]
     Dosage: 500 MG, UNK
  5. CELEBREX [Suspect]
     Dosage: 100 MG, UNK
  6. DETROL LA [Suspect]
     Dosage: 4 MG, UNK
  7. BENZONATATE [Suspect]
     Dosage: 200 MG, UNK
  8. NADOLOL [Suspect]
     Dosage: 20 MG, UNK
  9. ERYTHROMYCIN [Suspect]
     Dosage: UNK
  10. HYDROCHLOROTHIAZIDE [Suspect]
     Dosage: 25 MG, UNK
  11. EFFEXOR XR [Suspect]
     Dosage: 75 MG, UNK
  12. REQUIP [Suspect]
     Dosage: 1 MG, UNK
  13. AMITRIP-CDP [Suspect]
     Dosage: 12.5-5, UNK
  14. MICARDIS [Suspect]
     Dosage: 80 MG, UNK
  15. MICARDIS HCT [Suspect]
     Dosage: 80 MG, UNK
  16. MAXALT-MLT [Suspect]
     Dosage: 10 MG, UNK
  17. TOPAMAX [Suspect]
     Dosage: 25 MG, UNK
  18. AMITRIPTYLINE [Suspect]
     Dosage: 25 MG, UNK
  19. VIOXX [Suspect]
     Dosage: 25 MG, UNK
  20. DARVOCET [Suspect]
     Dosage: 100 MG, UNK
  21. LEXAPRO [Suspect]
     Dosage: UNK
  22. WELLBUTRIN SR [Suspect]
     Dosage: 150 MG, UNK
  23. CHLORTHALIDONE [Suspect]
     Dosage: 50 MG, UNK
  24. SUCRALFATE [Suspect]
     Dosage: 1 G, UNK
  25. GUAIFENEX LA [Suspect]
     Dosage: 600 MG, UNK
  26. NAPROXEN SODIUM [Suspect]
     Dosage: 500 MG, UNK
  27. ULTRASE [Suspect]
     Dosage: 37.5 MG, UNK
  28. CYCLOBENZAPRINE HCL [Suspect]
     Dosage: UNK
  29. HYOSCYAMINE [Suspect]
     Dosage: 0.375 MG, UNK
  30. FLUMADINE [Suspect]
     Dosage: 100 MG, UNK
  31. ALLEGRA [Suspect]
     Dosage: 180 MG, UNK
  32. PRILOSEC [Suspect]
     Dosage: UNK
  33. GUAIFENESIN\PSEUDOEPHEDRINE HYDROCHLORIDE [Suspect]
     Dosage: UNK
  34. BUPROPION HCL [Suspect]
     Dosage: 100 MG, UNK
  35. CEPHALEXIN [Suspect]
     Dosage: 500 MG, UNK
  36. LEVAQUIN [Suspect]
     Dosage: 500 MG, UNK
  37. PAXIL [Suspect]
     Dosage: UNK
  38. BACLOFEN [Suspect]
     Dosage: UNK
  39. CITALOPRAM HYDROBROMIDE [Suspect]
     Dosage: UNK
  40. CARVEDILOL [Suspect]
     Dosage: 6.25 MG, UNK
  41. ANTARA [Suspect]
     Dosage: 130 MG, UNK
  42. GUAIFEN-PSE [Suspect]
     Dosage: 600 MG, UNK
  43. FLEXERIL [Suspect]
     Dosage: 5 MG, UNK
  44. BIAXIN [Suspect]
     Dosage: UNK
  45. CARISOPRODOL [Suspect]
     Dosage: 350 MG, UNK
  46. TEKTURNA [Suspect]
     Dosage: UNK
  47. BUSPAR [Suspect]
     Dosage: UNK

REACTIONS (2)
  - Drug hypersensitivity [Unknown]
  - Drug intolerance [Unknown]
